FAERS Safety Report 15231532 (Version 3)
Quarter: 2018Q4

REPORT INFORMATION
  Report Type: Report from Study
  Country: US (occurrence: US)
  Receive Date: 20180802
  Receipt Date: 20181211
  Transmission Date: 20190204
  Serious: Yes (Congenital Anomaly, Other)
  Sender: FDA-Public Use
  Company Number: US-VIIV HEALTHCARE LIMITED-US2018GSK137652

PATIENT
  Sex: Male

DRUGS (1)
  1. ABACAVIRSULPHATE+DOLUTEGRAVIR+LAMIVUDINE [Suspect]
     Active Substance: ABACAVIR SULFATE\DOLUTEGRAVIR SODIUM\LAMIVUDINE
     Indication: HIV INFECTION
     Dosage: 1 DF, UNK
     Route: 064
     Dates: start: 20150116

REACTIONS (6)
  - Cystic fibrosis [Unknown]
  - Congenital cystic lung [Unknown]
  - Gastrointestinal malformation [Unknown]
  - Renal dysplasia [Unknown]
  - Congenital hydronephrosis [Unknown]
  - Foetal exposure during pregnancy [Unknown]
